FAERS Safety Report 4333902-5 (Version None)
Quarter: 2004Q2

REPORT INFORMATION
  Report Type: 
  Country: None (occurrence: None)
  Receive Date: 20040402
  Receipt Date: 20040324
  Transmission Date: 20050107
  Serious: Yes (Hospitalization)
  Sender: FDA-Public Use
  Company Number: 2004-114118-NL

PATIENT
  Sex: Male

DRUGS (1)
  1. REMERON SOLTAB [Suspect]
     Dosage: 30 MG DAILY ORAL
     Route: 048

REACTIONS (1)
  - SUICIDAL IDEATION [None]
